FAERS Safety Report 5322040-0 (Version None)
Quarter: 2007Q2

REPORT INFORMATION
  Report Type: 
  Country: None (occurrence: None)
  Receive Date: 20070507
  Receipt Date: 20070427
  Transmission Date: 20071010
  Serious: Yes (Life-Threatening, Hospitalization)
  Sender: FDA-Public Use
  Company Number: BR-1160839

PATIENT
  Age: 24 Month
  Sex: Male

DRUGS (3)
  1. PATANOL [Suspect]
     Indication: EYE DISCHARGE
     Dosage: EYE DROPS, SOLUTION, 1 GTT OU Q12H
     Route: 047
     Dates: start: 20070101
  2. PATANOL [Suspect]
     Indication: EYE PRURITUS
     Dosage: EYE DROPS, SOLUTION, 1 GTT OU Q12H
     Route: 047
     Dates: start: 20070101
  3. PATANOL [Suspect]
     Indication: PHOTOPHOBIA
     Dosage: EYE DROPS, SOLUTION, 1 GTT OU Q12H
     Route: 047
     Dates: start: 20070101

REACTIONS (2)
  - HYPERSENSITIVITY [None]
  - STEVENS-JOHNSON SYNDROME [None]
